FAERS Safety Report 7463854-0 (Version None)
Quarter: 2011Q2

REPORT INFORMATION
  Report Type: 
  Country: None (occurrence: None)
  Receive Date: 20110506
  Receipt Date: 20110427
  Transmission Date: 20111010
  Serious: Yes (Hospitalization)
  Sender: FDA-Public Use
  Company Number: US-ASTRAZENECA-2011SE24147

PATIENT
  Age: 65 Year
  Sex: Female

DRUGS (15)
  1. ARANESP [Suspect]
     Indication: RENAL FAILURE CHRONIC
     Route: 065
  2. MIRALAX [Concomitant]
  3. HYCODAN [Concomitant]
  4. THIAMINE [Concomitant]
  5. SORBITOL [Concomitant]
  6. SEROQUEL [Suspect]
     Route: 048
  7. LAMICTAL [Suspect]
     Route: 065
  8. LACTOBACILLUS [Concomitant]
  9. GENTAMICIN [Concomitant]
  10. LACTULOSE [Concomitant]
  11. EPOGEN [Suspect]
     Indication: RENAL FAILURE CHRONIC
     Route: 065
     Dates: end: 20110324
  12. PHENERGAN HCL [Concomitant]
  13. EPOGEN [Suspect]
     Route: 065
     Dates: end: 20110324
  14. LORAZEPAM [Concomitant]
  15. DEPAKOTE [Suspect]
     Route: 065
     Dates: end: 20110324

REACTIONS (5)
  - GENERAL PHYSICAL HEALTH DETERIORATION [None]
  - THROMBOCYTOPENIA [None]
  - DYSPHAGIA [None]
  - DYSSTASIA [None]
  - HAEMOGLOBIN DECREASED [None]
